FAERS Safety Report 4952922-0 (Version None)
Quarter: 2006Q1

REPORT INFORMATION
  Report Type: 
  Country: None (occurrence: None)
  Receive Date: 20060324
  Receipt Date: 20060315
  Transmission Date: 20060701
  Serious: Yes (Other)
  Sender: FDA-Public Use
  Company Number: PHEH2006US03464

PATIENT
  Age: 51 Year
  Sex: Female
  Weight: 49.433 kg

DRUGS (6)
  1. ZOLEDRONATE [Suspect]
     Indication: BREAST CANCER METASTATIC
     Dosage: 4 MG, QMO
     Dates: start: 20030101, end: 20050915
  2. FEMARA [Concomitant]
     Dosage: 2.5 MG, QD
  3. CALCIUM GLUCONATE [Concomitant]
  4. VITAMIN D [Concomitant]
  5. IRON [Concomitant]
  6. LASIX [Concomitant]
     Dosage: 20 MG, QD PRN

REACTIONS (7)
  - ALVEOLOPLASTY [None]
  - BONE DEBRIDEMENT [None]
  - DENTAL NECROSIS [None]
  - OSTEONECROSIS [None]
  - SEQUESTRECTOMY [None]
  - TOOTH DISORDER [None]
  - TOOTH EXTRACTION [None]
